FAERS Safety Report 9136501 (Version 1)
Quarter: 2013Q1

REPORT INFORMATION
  Report Type: Spontaneous
  Country: CA (occurrence: CA)
  Receive Date: 20130304
  Receipt Date: 20130304
  Transmission Date: 20140127
  Serious: Yes (Other)
  Sender: FDA-Public Use
  Company Number: CA-ASTRAZENECA-2013SE12141

PATIENT
  Age: 57 Year
  Sex: Female
  Weight: 47.2 kg

DRUGS (3)
  1. VIMOVO [Suspect]
     Dosage: ONE DOSAGE FORM IN EVERY EIGHT HOURS
     Route: 048
  2. STATEX [Concomitant]
  3. ESTROGEL [Concomitant]

REACTIONS (10)
  - Decreased appetite [Recovered/Resolved]
  - Feeling hot [Recovered/Resolved]
  - Influenza like illness [Recovered/Resolved]
  - Neck pain [Recovered/Resolved]
  - Abdominal pain [Recovered/Resolved]
  - Dyspnoea [Recovered/Resolved]
  - Headache [Recovered/Resolved]
  - Nausea [Recovered/Resolved]
  - Paraesthesia [Recovered/Resolved]
  - Tremor [Recovered/Resolved]
